FAERS Safety Report 24166972 (Version 2)
Quarter: 2024Q3

REPORT INFORMATION
  Report Type: Report from Study
  Country: IN (occurrence: IN)
  Receive Date: 20240802
  Receipt Date: 20240816
  Transmission Date: 20241016
  Serious: Yes (Life-Threatening)
  Sender: BAYER
  Company Number: IN-BAYER-2024A110498

PATIENT
  Age: 63 Year
  Sex: Male

DRUGS (1)
  1. FINERENONE [Suspect]
     Active Substance: FINERENONE

REACTIONS (2)
  - Arrhythmia [Recovered/Resolved]
  - Hyperkalaemia [Recovered/Resolved]

NARRATIVE: CASE EVENT DATE: 20240412
